FAERS Safety Report 10147277 (Version 1)
Quarter: 2014Q2

REPORT INFORMATION
  Report Type: Spontaneous
  Country: US (occurrence: US)
  Receive Date: 20140501
  Receipt Date: 20140501
  Transmission Date: 20141212
  Serious: No
  Sender: FDA-Public Use
  Company Number: US-009507513-1404USA002944

PATIENT
  Sex: Female

DRUGS (4)
  1. DULERA [Suspect]
     Indication: ASTHMA
     Dosage: 100 MICROGRAM, UNK
     Route: 048
     Dates: start: 20130823
  2. DULERA [Suspect]
     Dosage: 200 MICROGRAM, UNK
     Route: 048
  3. LISINOPRIL [Concomitant]
     Route: 048
  4. LOVASTATIN [Concomitant]
     Dosage: UNK
     Route: 048

REACTIONS (2)
  - Rash pruritic [Recovering/Resolving]
  - Pigmentation disorder [Recovering/Resolving]
